FAERS Safety Report 22243930 (Version 2)
Quarter: 2024Q3

REPORT INFORMATION
  Report Type: Report from Study
  Country: CA (occurrence: CA)
  Receive Date: 20230424
  Receipt Date: 20240802
  Transmission Date: 20241017
  Serious: Yes (Other)
  Sender: TAKEDA
  Company Number: CA-TAKEDA-2023TUS040330

PATIENT
  Sex: Female

DRUGS (4)
  1. VEDOLIZUMAB [Suspect]
     Active Substance: VEDOLIZUMAB
     Indication: Crohn^s disease
     Dosage: 300 MILLIGRAM
     Route: 042
     Dates: start: 20220211, end: 20240516
  2. VITAMIN B12 [Concomitant]
     Active Substance: CYANOCOBALAMIN
     Dosage: UNK UNK, QD
  3. VITAMIN A [Concomitant]
     Active Substance: VITAMIN A
     Dosage: UNK UNK, QD
  4. VITAMIN D [Concomitant]
     Active Substance: VITAMIN D NOS
     Dosage: UNK UNK, QD

REACTIONS (1)
  - Crohn^s disease [Unknown]
